FAERS Safety Report 5043036-2 (Version None)
Quarter: 2006Q2

REPORT INFORMATION
  Report Type: 
  Country: None (occurrence: None)
  Receive Date: 20060601
  Receipt Date: 20060330
  Transmission Date: 20061013
  Serious: No
  Sender: FDA-Public Use
  Company Number: 2006PV011192

PATIENT
  Age: 67 Year
  Sex: Female

DRUGS (6)
  1. BYETTA [Suspect]
     Indication: OFF LABEL USE
     Dosage: SEE IMAGE
     Route: 058
     Dates: start: 20051214, end: 20060102
  2. BYETTA [Suspect]
     Indication: OFF LABEL USE
     Dosage: SEE IMAGE
     Route: 058
     Dates: start: 20060103, end: 20060326
  3. AVANDIA [Concomitant]
  4. METFORMIN [Concomitant]
  5. GLIPIZIDE [Concomitant]
  6. NEXIUM [Concomitant]

REACTIONS (6)
  - BLOOD GLUCOSE DECREASED [None]
  - BLOOD GLUCOSE INCREASED [None]
  - DIFFICULTY IN WALKING [None]
  - DIZZINESS [None]
  - FEELING COLD [None]
  - HYPERHIDROSIS [None]
